FAERS Safety Report 12382236 (Version 2)
Quarter: 2016Q2

REPORT INFORMATION
  Report Type: Spontaneous
  Country: FR (occurrence: FR)
  Receive Date: 20160518
  Receipt Date: 20160610
  Transmission Date: 20160815
  Serious: Yes (Death, Other)
  Sender: FDA-Public Use
  Company Number: FR-CELGENEUS-FRA-2015116197

PATIENT

DRUGS (3)
  1. DEXAMETHASONE. [Concomitant]
     Active Substance: DEXAMETHASONE
     Indication: PLASMA CELL MYELOMA
     Route: 048
  2. REVLIMID [Suspect]
     Active Substance: LENALIDOMIDE
     Indication: PLASMA CELL MYELOMA
     Dosage: 25 MILLIGRAM
     Route: 048
  3. IXAZOMIB [Concomitant]
     Active Substance: IXAZOMIB
     Indication: PLASMA CELL MYELOMA
     Route: 048

REACTIONS (31)
  - Death [Fatal]
  - Myocardial infarction [Fatal]
  - Hypertensive crisis [Unknown]
  - Neoplasm malignant [Unknown]
  - Nausea [Unknown]
  - Plasma cell myeloma [Unknown]
  - Thrombocytopenia [Unknown]
  - Pneumonia [Unknown]
  - Rash [Unknown]
  - Insomnia [Unknown]
  - Encephalopathy [Unknown]
  - Interstitial lung disease [Unknown]
  - Renal failure [Unknown]
  - Neutropenia [Unknown]
  - Anaemia [Unknown]
  - Vomiting [Unknown]
  - Constipation [Unknown]
  - Fatigue [Unknown]
  - Oedema peripheral [Unknown]
  - Arrhythmia [Fatal]
  - Back pain [Unknown]
  - Cardiac failure [Fatal]
  - Upper respiratory tract infection [Unknown]
  - Embolism [Fatal]
  - Nasopharyngitis [Unknown]
  - Hypertension [Unknown]
  - Muscle spasms [Unknown]
  - Hypotension [Fatal]
  - Liver disorder [Unknown]
  - Diarrhoea [Unknown]
  - Neuropathy peripheral [Unknown]
